FAERS Safety Report 21637217 (Version 1)
Quarter: 2022Q4

REPORT INFORMATION
  Report Type: Spontaneous
  Country: DE (occurrence: DE)
  Receive Date: 20221124
  Receipt Date: 20221124
  Transmission Date: 20230112
  Serious: Yes (Hospitalization)
  Sender: FDA-Public Use
  Company Number: DE-009507513-2211DEU004515

PATIENT
  Age: 46 Year
  Sex: Female
  Weight: 89 kg

DRUGS (6)
  1. CARBOPLATIN [Suspect]
     Active Substance: CARBOPLATIN
     Indication: Non-small cell lung cancer
     Dosage: 420 MG (FIRST LINE 420 MILLIGRAM)
     Route: 065
     Dates: start: 20220917, end: 20220917
  2. CARBOPLATIN [Suspect]
     Active Substance: CARBOPLATIN
     Dosage: 420 MG (DATE OF LAST ADMINISTRATION WAS 13 OCT 2022)
     Route: 065
     Dates: start: 20221013
  3. PEMETREXED [Suspect]
     Active Substance: PEMETREXED
     Indication: Non-small cell lung cancer
     Dosage: 1040 MG (FIRST LINE 1040 MILLIGRAM)
     Route: 065
     Dates: start: 20220917, end: 20220917
  4. PEMETREXED [Suspect]
     Active Substance: PEMETREXED
     Dosage: 1040 MG (LAST DOSE ADMINISTRATION DATE WAS 13 OCT 2022)
     Route: 065
     Dates: start: 20221013
  5. PEMBROLIZUMAB [Suspect]
     Active Substance: PEMBROLIZUMAB
     Indication: Non-small cell lung cancer
     Dosage: 200 MG (FIRST LINE 200 MILLIGRAM)
     Route: 065
     Dates: start: 20220917, end: 20220917
  6. PEMBROLIZUMAB [Suspect]
     Active Substance: PEMBROLIZUMAB
     Dosage: 200 MG (DATE OF LAST ADMINISTRATION DOSE WAS 14 OCT 2022)
     Route: 065
     Dates: start: 20221014

REACTIONS (1)
  - Hyperthyroidism [Not Recovered/Not Resolved]

NARRATIVE: CASE EVENT DATE: 20221108
